FAERS Safety Report 13962346 (Version 4)
Quarter: 2018Q1

REPORT INFORMATION
  Report Type: Report from Study
  Country: None (occurrence: US)
  Receive Date: 20170912
  Receipt Date: 20180328
  Transmission Date: 20180508
  Serious: Yes (Other)
  Sender: FDA-Public Use
  Company Number: US-ABBVIE-17K-163-2097936-00

PATIENT
  Age: 27 Year
  Sex: Female

DRUGS (1)
  1. HUMIRA [Suspect]
     Active Substance: ADALIMUMAB
     Indication: CROHN^S DISEASE
     Route: 058
     Dates: end: 201705

REACTIONS (19)
  - Anxiety [Not Recovered/Not Resolved]
  - Malabsorption [Not Recovered/Not Resolved]
  - Retching [Unknown]
  - Immunodeficiency [Not Recovered/Not Resolved]
  - Nausea [Unknown]
  - Colitis [Recovering/Resolving]
  - Haemorrhoids [Not Recovered/Not Resolved]
  - Chills [Unknown]
  - Drug ineffective [Unknown]
  - Fatigue [Unknown]
  - Depression [Not Recovered/Not Resolved]
  - Pharyngitis [Recovered/Resolved]
  - Oropharyngeal pain [Recovered/Resolved]
  - Dizziness [Unknown]
  - Night sweats [Unknown]
  - Loss of consciousness [Recovered/Resolved]
  - Arthritis [Unknown]
  - Crohn^s disease [Not Recovered/Not Resolved]
  - Injection site haemorrhage [Unknown]

NARRATIVE: CASE EVENT DATE: 201611
